FAERS Safety Report 7709170-0 (Version None)
Quarter: 2011Q3

REPORT INFORMATION
  Report Type: 
  Country: None (occurrence: None)
  Receive Date: 20110825
  Receipt Date: 20110817
  Transmission Date: 20111222
  Serious: Yes (Other)
  Sender: FDA-Public Use
  Company Number: PHHY2011BR24347

PATIENT
  Sex: Male

DRUGS (6)
  1. CLONAZEPAM [Concomitant]
     Indication: SLEEP DISORDER
     Dosage: 1 DF, UNK
     Route: 048
  2. LIPOMAL [Concomitant]
     Indication: BLOOD CHOLESTEROL ABNORMAL
     Dosage: 1 DF AT NIGHT
     Route: 048
  3. PRAVASTATIN [Concomitant]
     Indication: BLOOD CHOLESTEROL ABNORMAL
     Dosage: 1 DF AT NIGHT
     Route: 048
  4. CITALOPRAM [Concomitant]
     Dosage: 1 DF, TABLET IN THE MORNING
     Route: 048
  5. LAMOTRIGINE [Concomitant]
     Dosage: 2 DF, UNK
     Route: 048
  6. TEGRETOL-XR [Suspect]
     Indication: CONVULSION
     Dosage: ONE AND A HALF TABLET TWICE A DAY
     Route: 048

REACTIONS (1)
  - CONVULSION [None]
